FAERS Safety Report 9642673 (Version 2)
Quarter: 2013Q4

REPORT INFORMATION
  Report Type: Spontaneous
  Country: US (occurrence: US)
  Receive Date: 20131024
  Receipt Date: 20131031
  Transmission Date: 20140711
  Serious: Yes (Other)
  Sender: FDA-Public Use
  Company Number: US-PFIZER INC-2013300382

PATIENT
  Age: 91 Year
  Sex: Female

DRUGS (1)
  1. ALPRAZOLAM [Suspect]
     Indication: ANXIETY
     Dosage: 0.25 MG, 2X/DAY
     Dates: end: 201310

REACTIONS (3)
  - Macular fibrosis [Recovering/Resolving]
  - Vision blurred [Unknown]
  - Visual impairment [Unknown]
